FAERS Safety Report 23856250 (Version 1)
Quarter: 2024Q2

REPORT INFORMATION
  Report Type: Spontaneous
  Country: US (occurrence: US)
  Receive Date: 20240515
  Receipt Date: 20240515
  Transmission Date: 20240716
  Serious: No
  Sender: FDA-Public Use
  Company Number: US-TARSUS PHARMACEUTICALS-TSP-US-2024-000086

PATIENT
  Age: 87 Year
  Sex: Male

DRUGS (3)
  1. XDEMVY [Suspect]
     Active Substance: LOTILANER
     Indication: Demodex blepharitis
     Dosage: UNK
     Route: 047
     Dates: start: 20240304, end: 20240313
  2. PANCRELIPASE\TYROSINE [Concomitant]
     Active Substance: PANCRELIPASE\TYROSINE
     Indication: Product used for unknown indication
     Dosage: UNK
     Route: 065
  3. ARTIFICIAL TEARS [CARMELLOSE SODIUM] [Concomitant]
     Indication: Product used for unknown indication
     Dosage: UNK
     Route: 065

REACTIONS (2)
  - Foreign body sensation in eyes [Recovered/Resolved]
  - Instillation site irritation [Recovered/Resolved]

NARRATIVE: CASE EVENT DATE: 20240301
